FAERS Safety Report 9630289 (Version 1)
Quarter: 2013Q4

REPORT INFORMATION
  Report Type: Report from Study
  Country: US (occurrence: US)
  Receive Date: 20131017
  Receipt Date: 20131017
  Transmission Date: 20140711
  Serious: Yes (Death)
  Sender: FDA-Public Use
  Company Number: US-ROCHE-1290764

PATIENT
  Sex: Female

DRUGS (5)
  1. AVASTIN [Suspect]
     Indication: PRODUCT USED FOR UNKNOWN INDICATION
     Route: 065
     Dates: start: 20120831
  2. AVASTIN [Suspect]
     Route: 065
     Dates: start: 20130107
  3. AVASTIN [Suspect]
     Route: 065
     Dates: start: 20130121
  4. AVASTIN [Suspect]
     Route: 065
     Dates: start: 20130204
  5. AVASTIN [Suspect]
     Route: 065
     Dates: start: 20130304

REACTIONS (1)
  - Death [Fatal]
